FAERS Safety Report 15289689 (Version 1)
Quarter: 2018Q3

REPORT INFORMATION
  Report Type: Spontaneous
  Country: US (occurrence: US)
  Receive Date: 20180803
  Receipt Date: 20180803
  Transmission Date: 20181010
  Serious: Yes (Other)
  Sender: FDA-Public Use
  Company Number: None

PATIENT
  Age: 58 Year
  Sex: Female
  Weight: 77.11 kg

DRUGS (8)
  1. CONCERTA [Concomitant]
     Active Substance: METHYLPHENIDATE HYDROCHLORIDE
  2. METHYLPHENIDATE (EQV?CONCENTRA) 36MG SA TAB [Suspect]
     Active Substance: METHYLPHENIDATE
     Indication: MENTAL IMPAIRMENT
     Dosage: ?          QUANTITY:30 DF DOSAGE FORM;?
     Route: 048
  3. DEPUYE IMPLANT (L) [Concomitant]
  4. ALEVE [Concomitant]
     Active Substance: NAPROXEN SODIUM
  5. STRYKER IMPLANT (R) [Concomitant]
  6. LOSARTIN [Concomitant]
     Active Substance: LOSARTAN
  7. BAYER ASPIRIN [Concomitant]
     Active Substance: ASPIRIN
  8. ALEVE PM [Concomitant]
     Active Substance: DIPHENHYDRAMINE HYDROCHLORIDE\NAPROXEN SODIUM

REACTIONS (1)
  - Drug dispensing error [None]

NARRATIVE: CASE EVENT DATE: 20180626
